FAERS Safety Report 14118104 (Version 3)
Quarter: 2018Q1

REPORT INFORMATION
  Report Type: Spontaneous
  Country: JP (occurrence: JP)
  Receive Date: 20171024
  Receipt Date: 20180103
  Transmission Date: 20180508
  Serious: Yes (Other)
  Sender: FDA-Public Use
  Company Number: JP-UCBSA-2017042064

PATIENT
  Age: 24 Year
  Sex: Female
  Weight: 48 kg

DRUGS (5)
  1. LEVETIRACETAM. [Suspect]
     Active Substance: LEVETIRACETAM
     Indication: SEIZURE
     Dosage: UNKNOWN DOSE
     Route: 041
  2. LEVETIRACETAM. [Suspect]
     Active Substance: LEVETIRACETAM
     Indication: SEIZURE
     Dosage: 1000 MG/DAY
     Route: 048
  3. DIAZEPAM. [Concomitant]
     Active Substance: DIAZEPAM
     Indication: PARTIAL SEIZURES
     Dosage: UNKNOWN DOSE
     Route: 041
  4. FOSPHENYTOIN SODIUM. [Concomitant]
     Active Substance: FOSPHENYTOIN SODIUM
     Indication: PARTIAL SEIZURES
     Dosage: UNKNOWN DOSE
     Route: 041
  5. SODIUM VALPROATE [Concomitant]
     Active Substance: VALPROATE SODIUM
     Indication: SEIZURE
     Dosage: 800 MG/DAY
     Route: 048

REACTIONS (7)
  - Treatment noncompliance [Unknown]
  - Pregnancy [Unknown]
  - Uterine abscess [Unknown]
  - Amniotic cavity infection [Unknown]
  - Seizure [Recovered/Resolved]
  - Clonic convulsion [Unknown]
  - Bacterial vaginosis [Unknown]
